FAERS Safety Report 21888494 (Version 14)
Quarter: 2023Q4

REPORT INFORMATION
  Report Type: Spontaneous
  Country: US (occurrence: US)
  Receive Date: 20230120
  Receipt Date: 20231227
  Transmission Date: 20240110
  Serious: Yes (Other)
  Sender: FDA-Public Use
  Company Number: US-GLAXOSMITHKLINE-US2023AMR007340

PATIENT

DRUGS (3)
  1. ZEJULA [Suspect]
     Active Substance: NIRAPARIB
     Indication: Ovarian cancer
     Dosage: 200 MG, QD
     Dates: start: 20230105
  2. ZEJULA [Suspect]
     Active Substance: NIRAPARIB
     Dosage: 100 MG, QD
     Dates: start: 202303
  3. ZEJULA [Suspect]
     Active Substance: NIRAPARIB
     Indication: Ovarian cancer
     Dosage: 100 MG, QD
     Route: 048

REACTIONS (37)
  - Renal impairment [Unknown]
  - Small intestinal obstruction [Unknown]
  - Neuropathy peripheral [Not Recovered/Not Resolved]
  - Nausea [Unknown]
  - Abdominal pain upper [Unknown]
  - Flatulence [Unknown]
  - Constipation [Unknown]
  - Asthenia [Not Recovered/Not Resolved]
  - Gastrointestinal motility disorder [Unknown]
  - Fatigue [Unknown]
  - Decreased appetite [Unknown]
  - Visual impairment [Unknown]
  - Pain [Unknown]
  - Dehydration [Unknown]
  - Red blood cell count decreased [Unknown]
  - Feeling abnormal [Recovering/Resolving]
  - Weight decreased [Unknown]
  - Dry mouth [Unknown]
  - Scar [Unknown]
  - Blood potassium decreased [Unknown]
  - Laboratory test abnormal [Unknown]
  - Blood test abnormal [Unknown]
  - Gastrointestinal disorder [Recovered/Resolved]
  - Hypoaesthesia [Not Recovered/Not Resolved]
  - Peripheral coldness [Not Recovered/Not Resolved]
  - Gait disturbance [Unknown]
  - Sensory loss [Unknown]
  - Increased tendency to bruise [Not Recovered/Not Resolved]
  - Lymphadenopathy [Not Recovered/Not Resolved]
  - Nodule [Not Recovered/Not Resolved]
  - Paraesthesia [Unknown]
  - Carbohydrate antigen 125 increased [Not Recovered/Not Resolved]
  - Dermatitis [Unknown]
  - Rash [Not Recovered/Not Resolved]
  - Irritability [Unknown]
  - Faeces soft [Unknown]
  - Product dose omission issue [Unknown]

NARRATIVE: CASE EVENT DATE: 20230201
